FAERS Safety Report 5390452-5 (Version None)
Quarter: 2007Q3

REPORT INFORMATION
  Report Type: 
  Country: None (occurrence: None)
  Receive Date: 20070712
  Receipt Date: 20070606
  Transmission Date: 20080115
  Serious: Yes (Disabling)
  Sender: FDA-Public Use
  Company Number: 6034642

PATIENT
  Age: 67 Year
  Sex: Male

DRUGS (6)
  1. AMLODIPINE [Suspect]
     Indication: ANGINA PECTORIS
     Dosage: 10 MG (10 MG,1 IN 1 D),ORAL
     Route: 048
     Dates: start: 20061120
  2. GLICLAZIDE (GLICLAZIDE) [Suspect]
     Indication: DIABETES MELLITUS
     Dosage: 80 MG (80 MG,1 IN 1 D),ORAL
     Route: 048
     Dates: start: 20050620
  3. ATENOLOL [Suspect]
     Indication: ANGINA PECTORIS
     Dosage: (100 MG),ORAL
     Route: 048
     Dates: start: 20060302
  4. GLUCOPHAGE [Suspect]
     Indication: DIABETES MELLITUS
     Dosage: 1000 MG (500 MG,2 IN 1 D),ORAL
     Route: 048
     Dates: start: 20061120
  5. RAMIPRIL [Suspect]
     Indication: ANGINA PECTORIS
     Dosage: 10 MG (10 MG,1 IN 1 D),ORAL
     Route: 048
     Dates: start: 20050824
  6. SIMVASTATIN [Concomitant]

REACTIONS (3)
  - HYPOGLYCAEMIA [None]
  - JEALOUS DELUSION [None]
  - SLEEP TERROR [None]
